FAERS Safety Report 7457617-X (Version None)
Quarter: 2011Q2

REPORT INFORMATION
  Report Type: 
  Country: None (occurrence: None)
  Receive Date: 20110504
  Receipt Date: 20110426
  Transmission Date: 20111010
  Serious: Yes (Hospitalization, Other)
  Sender: FDA-Public Use
  Company Number: US-GENZYME-CLOF-1001580

PATIENT
  Sex: Male

DRUGS (14)
  1. NEXIUM [Concomitant]
     Indication: GASTRITIS
     Dosage: 20 MG, UNK
     Route: 042
     Dates: start: 20110420
  2. MEROPENEM [Concomitant]
     Indication: PYREXIA
     Dosage: 1380 MG, UNK
     Route: 042
     Dates: start: 20110420
  3. CYTARABINE [Suspect]
     Indication: ACUTE MYELOID LEUKAEMIA
     Dosage: 36 MG, UNK
     Route: 037
     Dates: start: 20110419, end: 20110419
  4. ACETAMINOPHEN [Concomitant]
     Indication: PYREXIA
     Dosage: 650 MG, PRN
     Route: 048
     Dates: start: 20110420
  5. COLACE [Concomitant]
     Indication: CONSTIPATION
     Dosage: 100 MG, UNK
     Route: 048
     Dates: start: 20110420
  6. VANCOMYCIN [Concomitant]
     Indication: PRODUCT USED FOR UNKNOWN INDICATION
     Dosage: 1 G, UNK
     Route: 042
     Dates: start: 20110420, end: 20110423
  7. CLOFARABINE [Suspect]
     Indication: ACUTE MYELOID LEUKAEMIA
     Dosage: 96 MG, ONCE
     Route: 042
     Dates: start: 20110420, end: 20110420
  8. CEFTAZIDIME [Concomitant]
     Indication: PYREXIA
     Dosage: 2 G, UNK
     Route: 042
     Dates: start: 20110419, end: 20110421
  9. CYTARABINE [Suspect]
     Dosage: 1850 MG, UNK
     Route: 042
     Dates: start: 20110420, end: 20110420
  10. MIRALAX [Concomitant]
     Indication: CONSTIPATION
     Dosage: 17 G, UNK
     Route: 048
     Dates: start: 20110420
  11. BACTRIM [Concomitant]
     Indication: ANTIFUNGAL PROPHYLAXIS
     Dosage: 1 U, UNK
     Route: 048
     Dates: start: 20110420
  12. METHOTREXATE [Concomitant]
     Indication: PRODUCT USED FOR UNKNOWN INDICATION
     Dosage: 12 MG, UNK
     Route: 037
     Dates: start: 20110419, end: 20110419
  13. ALLOPURINOL [Concomitant]
     Indication: PROPHYLAXIS
     Dosage: 300 MG, UNK
     Route: 048
     Dates: start: 20110418, end: 20110421
  14. SOLU-MEDRONE [Concomitant]
     Indication: INFLAMMATION
     Dosage: 70 MG, UNK
     Route: 042
     Dates: start: 20110420

REACTIONS (3)
  - BLOOD CREATININE INCREASED [None]
  - GLOMERULAR FILTRATION RATE DECREASED [None]
  - RENAL FAILURE [None]
